FAERS Safety Report 4378350-7 (Version None)
Quarter: 2004Q2

REPORT INFORMATION
  Report Type: 
  Country: None (occurrence: None)
  Receive Date: 20040609
  Receipt Date: 20040602
  Transmission Date: 20050107
  Serious: Yes (Hospitalization)
  Sender: FDA-Public Use
  Company Number: US-SHR-04-021730

PATIENT

DRUGS (2)
  1. CAMPATH (ALEMTUZUMAB) AMPULE [Suspect]
     Dosage: UNK, UNK, UNK
     Route: 065
  2. ANTIEMETICS AND ANTINAUSEANTS [Concomitant]

REACTIONS (1)
  - PSYCHOTIC DISORDER [None]
